FAERS Safety Report 9271949 (Version 3)
Quarter: 2015Q1

REPORT INFORMATION
  Report Type: Spontaneous
  Country: US (occurrence: US)
  Receive Date: 20130506
  Receipt Date: 20150304
  Transmission Date: 20150721
  Serious: No
  Sender: FDA-Public Use
  Company Number: US-009507513-1305USA001566

PATIENT
  Sex: Male

DRUGS (6)
  1. PRILOSEC [Concomitant]
     Active Substance: OMEPRAZOLE MAGNESIUM
     Indication: ANXIETY
     Dosage: UNK
     Dates: start: 199901, end: 201304
  2. PROPECIA [Suspect]
     Active Substance: FINASTERIDE
     Indication: ANDROGENETIC ALOPECIA
     Dosage: 1 MG, UNK
     Route: 048
     Dates: start: 20000425
  3. PROZAC [Concomitant]
     Active Substance: FLUOXETINE HYDROCHLORIDE
     Indication: ANTIDEPRESSANT THERAPY
     Dosage: UNK
     Dates: start: 199701, end: 2001
  4. ZOLOFT [Concomitant]
     Active Substance: SERTRALINE HYDROCHLORIDE
     Indication: ANTIDEPRESSANT THERAPY
     Dosage: UNK
     Dates: start: 199704, end: 200305
  5. CLEOCIN [Concomitant]
     Active Substance: CLINDAMYCIN PHOSPHATE
     Indication: BACTERIAL INFECTION
     Dosage: UNK
     Dates: start: 199901, end: 2000
  6. ZYRTEC [Concomitant]
     Active Substance: CETIRIZINE HYDROCHLORIDE
     Indication: HYPERSENSITIVITY
     Dosage: UNK
     Dates: start: 199705, end: 200305

REACTIONS (9)
  - Erectile dysfunction [Unknown]
  - Anxiety [Unknown]
  - Gynaecomastia [Unknown]
  - Cognitive disorder [Not Recovered/Not Resolved]
  - Loss of libido [Unknown]
  - Blood cholesterol increased [Unknown]
  - Sexual dysfunction [Not Recovered/Not Resolved]
  - Hypertension [Unknown]
  - Depression [Unknown]

NARRATIVE: CASE EVENT DATE: 2008
